FAERS Safety Report 9107543 (Version 1)
Quarter: 2013Q1

REPORT INFORMATION
  Report Type: Spontaneous
  Country: GR (occurrence: GR)
  Receive Date: 20130221
  Receipt Date: 20130221
  Transmission Date: 20140127
  Serious: Yes (Other)
  Sender: FDA-Public Use
  Company Number: GR-ABBOTT-13P-066-1051922-00

PATIENT
  Sex: 0

DRUGS (3)
  1. ADALIMUMAB [Suspect]
     Indication: CROHN^S DISEASE
     Dosage: WEEK 0
  2. ADALIMUMAB [Suspect]
     Dosage: 80 MG WEEK 2
  3. ADALIMUMAB [Suspect]

REACTIONS (1)
  - Intestinal stenosis [Unknown]
